FAERS Safety Report 8879340 (Version 1)
Quarter: 2012Q4

REPORT INFORMATION
  Report Type: 
  Country: US (occurrence: US)
  Receive Date: 20121101
  Receipt Date: 20121101
  Transmission Date: 20130627
  Serious: No
  Sender: FDA-Public Use
  Company Number: US-BIOGENIDEC-2012BI047156

PATIENT
  Sex: Female

DRUGS (1)
  1. TYSABRI [Suspect]
     Indication: MULTIPLE SCLEROSIS
     Route: 042
     Dates: start: 20120806, end: 20120904

REACTIONS (5)
  - Nervousness [Unknown]
  - Musculoskeletal pain [Unknown]
  - Arthralgia [Unknown]
  - Malaise [Unknown]
  - Dizziness [Recovered/Resolved]
